FAERS Safety Report 19489200 (Version 1)
Quarter: 2021Q3

REPORT INFORMATION
  Report Type: Report from Study
  Country: US (occurrence: US)
  Receive Date: 20210703
  Receipt Date: 20210703
  Transmission Date: 20211014
  Serious: No
  Sender: FDA-Public Use
  Company Number: NVSC2021US145834

PATIENT
  Age: 49 Year
  Sex: Female
  Weight: 124.74 kg

DRUGS (1)
  1. LETROZOLE. [Suspect]
     Active Substance: LETROZOLE
     Indication: BREAST CANCER
     Dosage: 2.5 MG, QD
     Route: 048
     Dates: start: 202011, end: 202101

REACTIONS (2)
  - Crying [Recovering/Resolving]
  - Emotional disorder [Recovering/Resolving]
